FAERS Safety Report 4512479-5 (Version None)
Quarter: 2004Q4

REPORT INFORMATION
  Report Type: 
  Country: None (occurrence: None)
  Receive Date: 20041124
  Receipt Date: 20041104
  Transmission Date: 20050328
  Serious: Yes (Hospitalization, Other)
  Sender: FDA-Public Use
  Company Number: USA041183254

PATIENT
  Age: 58 Year
  Sex: Female
  Weight: 64 kg

DRUGS (2)
  1. FORTEO [Suspect]
     Indication: BONE DENSITY DECREASED
     Dosage: 20 UG DAY
     Dates: start: 20030201
  2. HIGH BLOOD PRESSURE MEDICATION [Concomitant]

REACTIONS (8)
  - CEREBRAL THROMBOSIS [None]
  - DEHYDRATION [None]
  - MEDICATION ERROR [None]
  - PHARMACEUTICAL PRODUCT COMPLAINT [None]
  - ROTATOR CUFF SYNDROME [None]
  - SHUNT MALFUNCTION [None]
  - TRANSIENT ISCHAEMIC ATTACK [None]
  - VOMITING [None]
